FAERS Safety Report 7674303-1 (Version None)
Quarter: 2011Q3

REPORT INFORMATION
  Report Type: 
  Country: None (occurrence: None)
  Receive Date: 20110810
  Receipt Date: 20101230
  Transmission Date: 20111222
  Serious: No
  Sender: FDA-Public Use
  Company Number: US-BAUSCH-2011BL000690

PATIENT
  Age: 63 Year
  Sex: Female
  Weight: 58 kg

DRUGS (3)
  1. RECLAST [Concomitant]
  2. CROMOLYN SODIUM [Suspect]
     Indication: SEASONAL ALLERGY
     Route: 045
     Dates: start: 20101228, end: 20101230
  3. CALCIUM WITH VITAMIN D [Concomitant]

REACTIONS (4)
  - ARRHYTHMIA [None]
  - HEADACHE [None]
  - BLOOD PRESSURE INCREASED [None]
  - PALPITATIONS [None]
